FAERS Safety Report 9599924 (Version 1)
Quarter: 2013Q4

REPORT INFORMATION
  Report Type: Spontaneous
  Country: US (occurrence: US)
  Receive Date: 20131004
  Receipt Date: 20131004
  Transmission Date: 20140711
  Serious: No
  Sender: FDA-Public Use
  Company Number: US-AMGEN-USASP2013032052

PATIENT
  Age: 52 Year
  Sex: Male
  Weight: 93.88 kg

DRUGS (4)
  1. ENBREL [Suspect]
     Indication: PRODUCT USED FOR UNKNOWN INDICATION
     Dosage: 50 MG, 2 TIMES/WK
  2. CALCIPOTRIENE [Concomitant]
     Dosage: 0.005 %, UNK
  3. DOVONEX [Concomitant]
     Dosage: 0.005 %, UNK
  4. CLOBETASOL [Concomitant]
     Dosage: 0.05 %, UNK

REACTIONS (3)
  - Rash generalised [Recovered/Resolved]
  - Injection site pain [Recovered/Resolved]
  - Psoriasis [Not Recovered/Not Resolved]
